FAERS Safety Report 14504994 (Version 1)
Quarter: 2018Q1

REPORT INFORMATION
  Report Type: Spontaneous
  Country: US (occurrence: US)
  Receive Date: 20180208
  Receipt Date: 20180208
  Transmission Date: 20180509
  Serious: No
  Sender: FDA-Public Use
  Company Number: US-JNJFOC-20171234727

PATIENT
  Sex: Male
  Weight: 121 kg

DRUGS (5)
  1. IMBRUVICA [Suspect]
     Active Substance: IBRUTINIB
     Indication: PRODUCT USED FOR UNKNOWN INDICATION
     Route: 048
     Dates: start: 20171031, end: 20171101
  2. LORAZEPAM. [Concomitant]
     Active Substance: LORAZEPAM
  3. ACYCLOVIR. [Concomitant]
     Active Substance: ACYCLOVIR
  4. TAMSULOSIN [Concomitant]
     Active Substance: TAMSULOSIN
  5. ALLOPURINOL. [Concomitant]
     Active Substance: ALLOPURINOL

REACTIONS (1)
  - Laboratory test abnormal [Unknown]
